FAERS Safety Report 6607599-5 (Version None)
Quarter: 2010Q1

REPORT INFORMATION
  Report Type: 
  Country: None (occurrence: None)
  Receive Date: 20100201
  Receipt Date: 20100118
  Transmission Date: 20100710
  Serious: No
  Sender: FDA-Public Use
  Company Number: US-144902

PATIENT
  Sex: Male
  Weight: 69.4003 kg

DRUGS (2)
  1. WINRHO SDF LIQUID [Suspect]
     Indication: IDIOPATHIC THROMBOCYTOPENIC PURPURA
     Dosage: 50 ?G/KG TOTAL INTRAVENOUS (NOT OTHERWISE SPECIFIED)
     Dates: start: 20091015, end: 20091015
  2. PREDNISONE TAB [Concomitant]

REACTIONS (4)
  - BLOOD LACTATE DEHYDROGENASE INCREASED [None]
  - DRUG INEFFECTIVE [None]
  - HAEMOLYSIS [None]
  - RETICULOCYTE COUNT INCREASED [None]
